FAERS Safety Report 4597659-5 (Version None)
Quarter: 2005Q1

REPORT INFORMATION
  Report Type: 
  Country: None (occurrence: None)
  Receive Date: 20050303
  Receipt Date: 20050224
  Transmission Date: 20050727
  Serious: Yes (Other)
  Sender: FDA-Public Use
  Company Number: GB-GLAXOSMITHKLINE-B0372922A

PATIENT
  Age: 65 Year
  Sex: Male

DRUGS (3)
  1. AVANDAMET [Suspect]
     Indication: DIABETES MELLITUS
     Route: 048
     Dates: start: 20041019, end: 20050131
  2. THYROXINE [Concomitant]
     Dosage: 100MCG PER DAY
     Route: 048
     Dates: start: 20031106
  3. THYROXINE [Concomitant]
     Dosage: 25MCG PER DAY
     Route: 048
     Dates: start: 20030515

REACTIONS (2)
  - ARTHRALGIA [None]
  - MUSCULOSKELETAL STIFFNESS [None]
